FAERS Safety Report 20538735 (Version 1)
Quarter: 2022Q1

REPORT INFORMATION
  Report Type: Spontaneous
  Country: CA (occurrence: CA)
  Receive Date: 20220302
  Receipt Date: 20220302
  Transmission Date: 20220424
  Serious: Yes (Other)
  Sender: FDA-Public Use
  Company Number: CA-JNJFOC-20210839303

PATIENT
  Age: 21 Year
  Sex: Female

DRUGS (1)
  1. INFLIXIMAB [Suspect]
     Active Substance: INFLIXIMAB
     Indication: Colitis ulcerative
     Route: 042

REACTIONS (8)
  - Throat tightness [Unknown]
  - Respiratory rate increased [Unknown]
  - Condition aggravated [Unknown]
  - Body temperature increased [Unknown]
  - Chest discomfort [Unknown]
  - Flushing [Unknown]
  - Intentional product use issue [Unknown]
  - Off label use [Unknown]
